FAERS Safety Report 7593828-0 (Version None)
Quarter: 2011Q3

REPORT INFORMATION
  Report Type: 
  Country: None (occurrence: None)
  Receive Date: 20110706
  Receipt Date: 20110630
  Transmission Date: 20111222
  Serious: Yes (Death, Hospitalization)
  Sender: FDA-Public Use
  Company Number: JP-NOVOPROD-323923

PATIENT
  Age: 78 Year
  Sex: Male
  Weight: 44 kg

DRUGS (12)
  1. NOVOSEVEN [Suspect]
     Indication: ACQUIRED HAEMOPHILIA
     Dosage: 5MG X 14 TIMES
     Route: 042
     Dates: start: 20110221, end: 20110223
  2. FACTOR XIII [Concomitant]
     Indication: PRODUCT USED FOR UNKNOWN INDICATION
  3. ADONA                              /00056903/ [Concomitant]
     Dosage: 50 MG, QD
     Route: 042
     Dates: start: 20110220, end: 20110222
  4. TRANSAMIN [Concomitant]
     Dosage: 1000 MG, QD
     Route: 042
     Dates: start: 20110220, end: 20110222
  5. BLOOD TRANSFUSION, AUXILIARY PRODUCTS [Concomitant]
  6. ASPIRIN [Concomitant]
     Route: 048
  7. ROZECLART                          /00522202/ [Concomitant]
     Dosage: 2 G, QD
     Route: 042
     Dates: start: 20110220, end: 20110223
  8. HALOPERIDOL [Concomitant]
     Dosage: 5 MG, QD
     Route: 042
     Dates: start: 20110221, end: 20110222
  9. FAMOTIDINE [Concomitant]
     Dosage: 20 MG, QD
     Route: 042
     Dates: start: 20110219, end: 20110221
  10. OMEPRAZOLE [Concomitant]
     Dosage: 20 MG, QD
     Route: 042
     Dates: start: 20110222, end: 20110310
  11. LEPETAN [Concomitant]
     Dosage: 0.2 MG, QD
     Route: 042
     Dates: start: 20110220, end: 20110225
  12. VITAMEDIN                          /00176001/ [Concomitant]
     Dosage: 1 A
     Route: 042
     Dates: start: 20110221, end: 20110310

REACTIONS (5)
  - CARDIAC ARREST [None]
  - ACUTE MYOCARDIAL INFARCTION [None]
  - PLATELET COUNT DECREASED [None]
  - RENAL IMPAIRMENT [None]
  - THROMBOSIS [None]
